FAERS Safety Report 10801616 (Version 6)
Quarter: 2022Q3

REPORT INFORMATION
  Report Type: Report from Study
  Country: JP (occurrence: JP)
  Receive Date: 20150217
  Receipt Date: 20220914
  Transmission Date: 20221027
  Serious: Yes (Death, Hospitalization, Other)
  Sender: FDA-Public Use
  Company Number: JP-BRISTOL-MYERS SQUIBB-BMS-2015-005095

PATIENT
  Age: 68 Year
  Sex: Male
  Weight: 62 kg

DRUGS (15)
  1. NIVOLUMAB [Suspect]
     Active Substance: NIVOLUMAB
     Indication: Malignant melanoma
     Dosage: 2 MG/KG, Q3WK
     Route: 041
     Dates: start: 20141104, end: 20141104
  2. NIVOLUMAB [Suspect]
     Active Substance: NIVOLUMAB
     Dosage: 2 MG/KG, Q3WK
     Route: 041
     Dates: start: 20141125, end: 20141125
  3. NIVOLUMAB [Suspect]
     Active Substance: NIVOLUMAB
     Dosage: 2 MG/KG, Q3WK
     Route: 041
     Dates: start: 20141216, end: 20141216
  4. NIVOLUMAB [Suspect]
     Active Substance: NIVOLUMAB
     Dosage: 2 MG/KG, Q3WK
     Route: 041
     Dates: start: 20150302, end: 20150302
  5. NIVOLUMAB [Suspect]
     Active Substance: NIVOLUMAB
     Dosage: 2 MG/KG, Q3WK
     Route: 041
     Dates: start: 20150323, end: 20150323
  6. NIVOLUMAB [Suspect]
     Active Substance: NIVOLUMAB
     Dosage: 2 MG/KG, Q3WK
     Route: 041
     Dates: start: 20150413, end: 20150413
  7. NIVOLUMAB [Suspect]
     Active Substance: NIVOLUMAB
     Dosage: 2 MG/KG, Q3WK
     Route: 041
     Dates: start: 20150511, end: 20150511
  8. NIVOLUMAB [Suspect]
     Active Substance: NIVOLUMAB
     Dosage: 2 MG/KG, Q3WK
     Route: 041
     Dates: start: 20150601, end: 20150601
  9. NIVOLUMAB [Suspect]
     Active Substance: NIVOLUMAB
     Dosage: 2 MG/KG, Q3WK
     Route: 041
     Dates: start: 20150622, end: 20150622
  10. NIVOLUMAB [Suspect]
     Active Substance: NIVOLUMAB
     Dosage: 2 MG/KG, Q3WK
     Route: 041
     Dates: start: 20150713, end: 20150713
  11. NIVOLUMAB [Suspect]
     Active Substance: NIVOLUMAB
     Dosage: 2 MG/KG, Q3WK
     Route: 041
     Dates: start: 20150803, end: 20150803
  12. NIVOLUMAB [Suspect]
     Active Substance: NIVOLUMAB
     Dosage: 2 MG/KG, Q3WK
     Route: 041
     Dates: start: 20150824, end: 20150824
  13. NIVOLUMAB [Suspect]
     Active Substance: NIVOLUMAB
     Dosage: 2 MG/KG, Q3WK
     Route: 041
     Dates: start: 20150914, end: 20150914
  14. NIVOLUMAB [Suspect]
     Active Substance: NIVOLUMAB
     Dosage: 2 MG/KG, Q3WK
     Route: 041
     Dates: start: 20151013, end: 20151013
  15. FLOMOXEF SODIUM [Suspect]
     Active Substance: FLOMOXEF SODIUM
     Indication: Product used for unknown indication
     Route: 041

REACTIONS (9)
  - Malignant neoplasm progression [Fatal]
  - Bursitis [Recovered/Resolved]
  - Anaemia [Not Recovered/Not Resolved]
  - Blood alkaline phosphatase increased [Recovered/Resolved]
  - Gamma-glutamyltransferase increased [Recovered/Resolved]
  - C-reactive protein increased [Recovered/Resolved]
  - Blood bilirubin increased [Recovered/Resolved]
  - White blood cell count increased [Recovered/Resolved]
  - Off label use [Unknown]

NARRATIVE: CASE EVENT DATE: 20150101
